FAERS Safety Report 13789601 (Version 1)
Quarter: 2017Q3

REPORT INFORMATION
  Report Type: Spontaneous
  Country: US (occurrence: US)
  Receive Date: 20170725
  Receipt Date: 20170725
  Transmission Date: 20171127
  Serious: No
  Sender: FDA-Public Use
  Company Number: US-UNITED THERAPEUTICS-UNT-2017-001493

PATIENT
  Age: 39 Year
  Sex: Female
  Weight: 90.7 kg

DRUGS (4)
  1. REMODULIN [Suspect]
     Active Substance: TREPROSTINIL
     Indication: PULMONARY ARTERIAL HYPERTENSION
     Dosage: 0.004 ?G/KG, CONTINUING
     Route: 058
     Dates: start: 20170119
  2. TRACLEER [Concomitant]
     Active Substance: BOSENTAN
     Indication: PRODUCT USED FOR UNKNOWN INDICATION
  3. REMODULIN [Suspect]
     Active Substance: TREPROSTINIL
     Dosage: 0.006 ?G/KG, CONTINUING
     Route: 058
  4. ADCIRCA [Concomitant]
     Active Substance: TADALAFIL
     Indication: PRODUCT USED FOR UNKNOWN INDICATION

REACTIONS (15)
  - Headache [Unknown]
  - Influenza [Unknown]
  - Upper respiratory tract infection [Unknown]
  - Ear infection [Unknown]
  - Infusion site oedema [Unknown]
  - Pain in jaw [Unknown]
  - Infusion site pruritus [Unknown]
  - Night sweats [Unknown]
  - Diarrhoea [Unknown]
  - Infusion site erythema [Unknown]
  - Nasopharyngitis [Unknown]
  - Sinusitis [Unknown]
  - Infusion site pain [Unknown]
  - Wheezing [Unknown]
  - Nausea [Unknown]

NARRATIVE: CASE EVENT DATE: 20170131
